FAERS Safety Report 15394096 (Version 2)
Quarter: 2018Q4

REPORT INFORMATION
  Report Type: Spontaneous
  Country: US (occurrence: US)
  Receive Date: 20180917
  Receipt Date: 20180918
  Transmission Date: 20190204
  Serious: Yes (Other)
  Sender: FDA-Public Use
  Company Number: US-JNJFOC-20180904618

PATIENT
  Age: 12 Year
  Sex: Female

DRUGS (1)
  1. NTG ACNE CLEANSER UNSPECIFIED (NTG ACNE CLEANSER UNSPECIFIED USA) UNSP [Suspect]
     Active Substance: BENZOYL PEROXIDE OR SALICYLIC ACID
     Indication: PRODUCT USED FOR UNKNOWN INDICATION
     Route: 061

REACTIONS (2)
  - Application site burn [Unknown]
  - Scar [Not Recovered/Not Resolved]
